FAERS Safety Report 7212812-X (Version None)
Quarter: 2011Q1

REPORT INFORMATION
  Report Type: 
  Country: None (occurrence: None)
  Receive Date: 20110106
  Receipt Date: 20101123
  Transmission Date: 20110831
  Serious: Yes (Death, Life-Threatening, Other)
  Sender: FDA-Public Use
  Company Number: US-BAXTER-2009BH017016

PATIENT
  Age: 82 Year
  Sex: Female
  Weight: 35 kg

DRUGS (56)
  1. HEPARIN SODIUM INJECTION [Suspect]
     Route: 058
     Dates: start: 20071104, end: 20071107
  2. HEPARIN SODIUM INJECTION [Suspect]
     Route: 065
  3. HEPARIN SODIUM INJECTION [Suspect]
     Route: 040
     Dates: start: 20070929, end: 20071117
  4. AMIODARONE HYDROCHLORIDE [Concomitant]
     Indication: PRODUCT USED FOR UNKNOWN INDICATION
     Route: 048
  5. MEGESTROL ACETATE [Concomitant]
     Indication: PRODUCT USED FOR UNKNOWN INDICATION
     Route: 048
  6. VICODIN [Concomitant]
     Indication: PAIN
     Route: 065
  7. LEVAQUIN [Concomitant]
     Indication: PRODUCT USED FOR UNKNOWN INDICATION
     Route: 065
     Dates: start: 20070901
  8. HEPARIN SODIUM INJECTION [Suspect]
     Route: 065
  9. HEPARIN SODIUM INJECTION [Suspect]
     Route: 065
  10. HEPARIN SODIUM INJECTION [Suspect]
     Route: 065
  11. HEPARIN SODIUM INJECTION [Suspect]
     Route: 065
  12. HEPARIN SODIUM INJECTION [Suspect]
     Route: 065
  13. HEPARIN SODIUM INJECTION [Suspect]
     Route: 065
     Dates: start: 20071103, end: 20071103
  14. PROPOXYPHENE NAPSYLATE W/ ACETAMINOPHEN [Concomitant]
     Indication: PRODUCT USED FOR UNKNOWN INDICATION
     Route: 048
  15. ANCEF [Concomitant]
     Indication: PRODUCT USED FOR UNKNOWN INDICATION
     Route: 042
  16. MAGIC MOUTHWASH [Concomitant]
     Indication: PRODUCT USED FOR UNKNOWN INDICATION
     Route: 065
     Dates: start: 20070901
  17. NEUTRA-PHOS [Concomitant]
     Indication: PRODUCT USED FOR UNKNOWN INDICATION
     Route: 065
     Dates: start: 20070801
  18. NOVOLOG [Concomitant]
     Indication: PRODUCT USED FOR UNKNOWN INDICATION
     Route: 065
     Dates: start: 20070801
  19. HEPARIN SODIUM INJECTION [Suspect]
     Route: 041
     Dates: start: 20070101, end: 20071101
  20. HEPARIN SODIUM INJECTION [Suspect]
     Route: 040
     Dates: start: 20070929, end: 20071117
  21. MORPHINE SULFATE [Concomitant]
     Indication: PRODUCT USED FOR UNKNOWN INDICATION
     Route: 030
     Dates: start: 20070801, end: 20071001
  22. ZITHROMAX [Concomitant]
     Indication: PRODUCT USED FOR UNKNOWN INDICATION
     Route: 065
     Dates: start: 20070901
  23. ASPIRIN [Concomitant]
     Indication: PRODUCT USED FOR UNKNOWN INDICATION
     Route: 048
  24. FLAGYL [Concomitant]
     Indication: PRODUCT USED FOR UNKNOWN INDICATION
     Route: 048
     Dates: start: 20071101, end: 20071103
  25. HEPARIN SODIUM INJECTION [Suspect]
     Indication: THROMBECTOMY
     Route: 040
     Dates: start: 20070101, end: 20071101
  26. LOCUASTI SODIUM [Concomitant]
     Indication: PRODUCT USED FOR UNKNOWN INDICATION
     Route: 065
  27. LISINOPRIL [Concomitant]
     Indication: PRODUCT USED FOR UNKNOWN INDICATION
     Route: 065
  28. MULTI-VITAMINS [Concomitant]
     Indication: PRODUCT USED FOR UNKNOWN INDICATION
     Route: 065
  29. TRAMADOL HCL [Concomitant]
     Indication: PRODUCT USED FOR UNKNOWN INDICATION
     Route: 048
     Dates: start: 20070901, end: 20071001
  30. EMLA [Concomitant]
     Indication: ARTERIOVENOUS GRAFT
     Route: 061
  31. ACETAMINOPHEN [Concomitant]
     Indication: PRODUCT USED FOR UNKNOWN INDICATION
     Route: 065
  32. HEPARIN SODIUM INJECTION [Suspect]
     Route: 065
     Dates: start: 20071103, end: 20071103
  33. HEPARIN SODIUM INJECTION [Suspect]
     Route: 065
     Dates: start: 20071103, end: 20071103
  34. HEPARIN SODIUM INJECTION [Suspect]
     Route: 065
  35. HEPARIN SODIUM INJECTION [Suspect]
     Route: 065
     Dates: start: 20071030, end: 20071030
  36. HEPARIN SODIUM INJECTION [Suspect]
     Route: 065
     Dates: start: 20071103, end: 20071103
  37. LEXAPRO [Concomitant]
     Indication: PRODUCT USED FOR UNKNOWN INDICATION
     Route: 048
  38. ATROVENT [Concomitant]
     Indication: PRODUCT USED FOR UNKNOWN INDICATION
     Route: 065
     Dates: start: 20070901
  39. DIGOXIN [Concomitant]
     Indication: PRODUCT USED FOR UNKNOWN INDICATION
     Route: 065
  40. XOPENEX [Concomitant]
     Indication: PRODUCT USED FOR UNKNOWN INDICATION
     Route: 055
  41. PLAVIX [Concomitant]
     Indication: PRODUCT USED FOR UNKNOWN INDICATION
     Route: 065
  42. HEPARIN SODIUM INJECTION [Suspect]
     Route: 041
     Dates: start: 20070101, end: 20071101
  43. HEPARIN SODIUM INJECTION [Suspect]
     Route: 058
     Dates: start: 20071104, end: 20071107
  44. HEPARIN SODIUM INJECTION [Suspect]
     Route: 065
  45. HEPARIN SODIUM INJECTION [Suspect]
     Route: 065
  46. HEPARIN SODIUM INJECTION [Suspect]
     Route: 065
  47. HEPARIN SODIUM INJECTION [Suspect]
     Route: 065
     Dates: start: 20071104, end: 20071106
  48. NITRGLYCERIN TRANSDERMAL SYSTEM [Concomitant]
     Indication: PRODUCT USED FOR UNKNOWN INDICATION
     Route: 061
  49. AMLODIPINE BESYLATE [Concomitant]
     Indication: PRODUCT USED FOR UNKNOWN INDICATION
     Route: 065
     Dates: start: 20070801
  50. RENAGEL [Concomitant]
     Indication: PRODUCT USED FOR UNKNOWN INDICATION
     Route: 065
  51. HEPARIN SODIUM INJECTION [Suspect]
     Indication: HAEMODIALYSIS
     Route: 040
     Dates: start: 20070101, end: 20071101
  52. HEPARIN SODIUM INJECTION [Suspect]
     Route: 065
     Dates: start: 20071030, end: 20071030
  53. HEPARIN SODIUM INJECTION [Suspect]
     Route: 065
     Dates: start: 20071104, end: 20071106
  54. BUSPIRONE HYDROCHLORIDE [Concomitant]
     Indication: PRODUCT USED FOR UNKNOWN INDICATION
     Route: 065
  55. TOPROL-XL [Concomitant]
     Indication: PRODUCT USED FOR UNKNOWN INDICATION
     Route: 065
  56. ASCORBIC ACID [Concomitant]
     Indication: PRODUCT USED FOR UNKNOWN INDICATION
     Route: 048

REACTIONS (14)
  - UNRESPONSIVE TO STIMULI [None]
  - ARTERIOSCLEROSIS [None]
  - HAEMORRHAGE [None]
  - COAGULOPATHY [None]
  - NAUSEA [None]
  - MENTAL STATUS CHANGES [None]
  - RESPIRATORY DISTRESS [None]
  - DYSPNOEA [None]
  - CARDIO-RESPIRATORY ARREST [None]
  - DEMENTIA [None]
  - FATIGUE [None]
  - BLOOD PRESSURE DECREASED [None]
  - DIARRHOEA [None]
  - VOMITING [None]
